FAERS Safety Report 5050825-7 (Version None)
Quarter: 2006Q3

REPORT INFORMATION
  Report Type: 
  Country: None (occurrence: None)
  Receive Date: 20060710
  Receipt Date: 20060627
  Transmission Date: 20061208
  Serious: Yes (Death, Life-Threatening)
  Sender: FDA-Public Use
  Company Number: GXKR2006JP02313

PATIENT
  Age: 66 Year
  Sex: Male

DRUGS (5)
  1. RIMACTANE [Suspect]
     Indication: PULMONARY TUBERCULOSIS
     Dosage: 300 MG, ORAL
     Route: 048
     Dates: start: 20060302, end: 20060420
  2. ISONIAZID [Suspect]
     Indication: PULMONARY TUBERCULOSIS
     Dosage: 400 MG, ORAL
     Route: 048
     Dates: start: 20060302, end: 20060420
  3. PYRAZINAMIDE [Suspect]
     Indication: PULMONARY TUBERCULOSIS
     Dosage: 1 G, ORAL
     Route: 048
     Dates: start: 20060302, end: 20060420
  4. ETHAMBUTOL HCL [Suspect]
     Indication: PULMONARY TUBERCULOSIS
     Dosage: 500 MG, ORAL
     Route: 048
     Dates: start: 20060302, end: 20060420
  5. ADEROXAL (PYRIDOXAL PHOSPHATE) [Concomitant]

REACTIONS (5)
  - HAEMODIALYSIS [None]
  - HEPATIC FAILURE [None]
  - HEPATITIS FULMINANT [None]
  - SOMNOLENCE [None]
  - WHITE BLOOD CELL COUNT DECREASED [None]
